FAERS Safety Report 8364146-8 (Version None)
Quarter: 2012Q2

REPORT INFORMATION
  Report Type: 
  Country: None (occurrence: None)
  Receive Date: 20120516
  Receipt Date: 20120515
  Transmission Date: 20120825
  Serious: Yes (Death, Hospitalization, Other)
  Sender: FDA-Public Use
  Company Number: FR-JNJFOC-20120503970

PATIENT

DRUGS (8)
  1. CYCLOPHOSPHAMIDE [Suspect]
     Dosage: 3 G/M2
     Route: 042
  2. PREDNISONE TAB [Suspect]
     Indication: CHRONIC LYMPHOCYTIC LEUKAEMIA
     Route: 048
  3. FLUDARABINE PHOSPHATE [Suspect]
     Route: 048
  4. DOXORUBICIN HCL [Suspect]
     Indication: CHRONIC LYMPHOCYTIC LEUKAEMIA
     Route: 042
  5. CYCLOPHOSPHAMIDE [Suspect]
     Indication: CHRONIC LYMPHOCYTIC LEUKAEMIA
     Route: 042
  6. FLUDARABINE PHOSPHATE [Suspect]
     Indication: CHRONIC LYMPHOCYTIC LEUKAEMIA
     Route: 042
  7. GRANULOCYTE COLONY STIMULATING  FACTOR [Suspect]
     Indication: CHRONIC LYMPHOCYTIC LEUKAEMIA
     Route: 058
  8. VINCRISTINE [Suspect]
     Indication: CHRONIC LYMPHOCYTIC LEUKAEMIA
     Route: 042

REACTIONS (6)
  - MULTIPLE MYELOMA [None]
  - ACUTE MYELOID LEUKAEMIA [None]
  - BACTERIAL INFECTION [None]
  - TREATMENT RELATED SECONDARY MALIGNANCY [None]
  - CHRONIC LYMPHOCYTIC LEUKAEMIA [None]
  - SKIN CANCER [None]
